FAERS Safety Report 10704058 (Version 2)
Quarter: 2015Q1

REPORT INFORMATION
  Report Type: Spontaneous
  Country: AR (occurrence: AR)
  Receive Date: 20150112
  Receipt Date: 20150121
  Transmission Date: 20150721
  Serious: Yes (Death, Hospitalization)
  Sender: FDA-Public Use
  Company Number: AR-SA-2015SA002305

PATIENT
  Sex: Male
  Weight: 8 kg

DRUGS (1)
  1. MYOZYME [Suspect]
     Active Substance: ALGLUCOSIDASE ALFA
     Indication: GLYCOGEN STORAGE DISEASE TYPE II
     Route: 042
     Dates: start: 20130410, end: 20150102

REACTIONS (4)
  - Respiratory disorder [Recovering/Resolving]
  - Cardio-respiratory arrest [Fatal]
  - Secretion discharge [Unknown]
  - Carbon dioxide abnormal [Unknown]

NARRATIVE: CASE EVENT DATE: 201501
